FAERS Safety Report 8255628-8 (Version None)
Quarter: 2012Q1

REPORT INFORMATION
  Report Type: 
  Country: None (occurrence: None)
  Receive Date: 20120322
  Receipt Date: 20111207
  Transmission Date: 20120608
  Serious: Yes (Death)
  Sender: FDA-Public Use
  Company Number: UTC-013161

PATIENT
  Age: 64 Year
  Sex: Female
  Weight: 67.7 kg

DRUGS (2)
  1. TYVASO [Suspect]
     Indication: COR PULMONALE CHRONIC
     Dosage: 216 MCG (54  MCG, 4 IN 1 D), INHALATION
     Route: 055
     Dates: start: 20110601
  2. REVATIO [Concomitant]

REACTIONS (1)
  - ACUTE RESPIRATORY FAILURE [None]
